FAERS Safety Report 8005677-X (Version None)
Quarter: 2011Q4

REPORT INFORMATION
  Report Type: 
  Country: None (occurrence: None)
  Receive Date: 20111223
  Receipt Date: 20111220
  Transmission Date: 20120403
  Serious: Yes (Hospitalization)
  Sender: FDA-Public Use
  Company Number: US-VERTEX PHARMACEUTICALS INC.-AE-2011-002361

PATIENT
  Sex: Male
  Weight: 73.548 kg

DRUGS (5)
  1. PEGINTERFERON ALFA-2A [Concomitant]
     Indication: HEPATITIS C
     Route: 058
     Dates: start: 20111011
  2. RIBAVIRIN [Concomitant]
     Indication: HEPATITIS C
     Route: 048
     Dates: start: 20111011
  3. DIAZEPAM [Concomitant]
     Indication: SLEEP DISORDER
     Route: 048
  4. INCIVEK [Suspect]
     Indication: HEPATITIS C
     Route: 048
     Dates: start: 20111011
  5. LISINOPRIL [Concomitant]
     Route: 048

REACTIONS (5)
  - LYMPHADENOPATHY [None]
  - FAECES HARD [None]
  - INGUINAL HERNIA [None]
  - RASH ERYTHEMATOUS [None]
  - ANORECTAL DISCOMFORT [None]
